FAERS Safety Report 8884560 (Version 1)
Quarter: 2012Q4

REPORT INFORMATION
  Report Type: 
  Country: US (occurrence: US)
  Receive Date: 20121102
  Receipt Date: 20121102
  Transmission Date: 20130627
  Serious: No
  Sender: FDA-Public Use
  Company Number: US-ASTRAZENECA-2012SE16516

PATIENT
  Age: 58 Year
  Sex: Female
  Weight: 63 kg

DRUGS (11)
  1. CRESTOR [Suspect]
     Indication: BLOOD CHOLESTEROL ABNORMAL
     Route: 048
     Dates: end: 20120309
  2. CRESTOR [Suspect]
     Indication: LOW DENSITY LIPOPROTEIN INCREASED
     Route: 048
     Dates: end: 20120309
  3. IRON [Suspect]
     Route: 065
  4. ARMOUR THYROID [Concomitant]
  5. CYMBALTA [Concomitant]
  6. LUNESTA [Concomitant]
     Indication: SLEEP DISORDER
  7. B-VITAMINS [Concomitant]
  8. HORMONE REPLACEMENT THERAPY [Concomitant]
  9. CALCIUM [Concomitant]
  10. VITAMIN D3 [Concomitant]
  11. MAGNESIUM [Concomitant]

REACTIONS (5)
  - Haemochromatosis [Recovered/Resolved]
  - Nausea [Unknown]
  - Headache [Unknown]
  - Constipation [Unknown]
  - Fatigue [Unknown]
